FAERS Safety Report 23563497 (Version 3)
Quarter: 2024Q4

REPORT INFORMATION
  Report Type: Spontaneous
  Country: IT (occurrence: IT)
  Receive Date: 20240226
  Receipt Date: 20241001
  Transmission Date: 20250115
  Serious: Yes (Life-Threatening, Other)
  Sender: SANDOZ
  Company Number: IT-SAMSUNG BIOEPIS-SB-2023-33472

PATIENT
  Age: 20 Year
  Sex: Male

DRUGS (26)
  1. ADALIMUMAB [Suspect]
     Active Substance: ADALIMUMAB
     Indication: Still^s disease
     Dosage: 2.5 MG, QD
     Route: 048
     Dates: start: 200508, end: 200512
  2. ADALIMUMAB [Suspect]
     Active Substance: ADALIMUMAB
     Dosage: 2.5 MG, QD
     Route: 048
     Dates: start: 200807, end: 200901
  3. ADALIMUMAB [Suspect]
     Active Substance: ADALIMUMAB
     Dosage: 2.5 MG/KG, QD
     Route: 048
     Dates: start: 200408, end: 200507
  4. ADALIMUMAB [Suspect]
     Active Substance: ADALIMUMAB
     Dosage: 2.5 MG/KG, QD
     Route: 048
     Dates: start: 200606, end: 200608
  5. ADALIMUMAB [Suspect]
     Active Substance: ADALIMUMAB
     Indication: Still^s disease
     Dosage: UNK
     Route: 065
  6. AZATHIOPRINE [Suspect]
     Active Substance: AZATHIOPRINE
     Indication: Haemophagocytic lymphohistiocytosis
     Dosage: 2 MG/KG, DAILY
     Route: 048
     Dates: start: 200603, end: 200606
  7. ABATACEPT [Suspect]
     Active Substance: ABATACEPT
     Indication: Still^s disease
     Dosage: UNK
     Route: 065
  8. ANAKINRA [Suspect]
     Active Substance: ANAKINRA
     Indication: Still^s disease
     Dosage: 25 TO 50 MG/KG/WEEK (0.8 MG/KG/WEEK)
     Route: 058
     Dates: start: 201310, end: 201803
  9. BARICITINIB [Suspect]
     Active Substance: BARICITINIB
     Indication: Still^s disease
     Dosage: 4.000MG QD
     Route: 048
     Dates: start: 202007, end: 202205
  10. CYCLOSPORINE [Suspect]
     Active Substance: CYCLOSPORINE
     Indication: Still^s disease
     Dosage: UNKNOWN
     Route: 065
  11. CANAKINUMAB [Suspect]
     Active Substance: CANAKINUMAB
     Indication: Haemophagocytic lymphohistiocytosis
     Dosage: 300 MG/4 WEEKS
     Route: 065
     Dates: start: 201803, end: 202007
  12. ETANERCEPT [Suspect]
     Active Substance: ETANERCEPT
     Indication: Still^s disease
     Dosage: 25 TO 50 MG/KG/WEEK (0.8 MG/KG/WEEK)
     Route: 058
     Dates: start: 201310, end: 201803
  13. ETANERCEPT [Suspect]
     Active Substance: ETANERCEPT
     Dosage: 25 TO 50 MG/KG/WEEK (0.8 MG/KG/WEEK)
     Route: 058
     Dates: start: 200507, end: 200512
  14. ETANERCEPT [Suspect]
     Active Substance: ETANERCEPT
     Dosage: 25 TO 50 MG/KG/WEEK (0.8 MG/KG/WEEK)
     Route: 058
     Dates: start: 200901, end: 201308
  15. ETANERCEPT [Suspect]
     Active Substance: ETANERCEPT
     Indication: Still^s disease
     Dosage: UNK
     Route: 065
  16. METHOTREXATE [Suspect]
     Active Substance: METHOTREXATE
     Indication: Still^s disease
     Dosage: 15.000MG
     Route: 058
  17. METHOTREXATE SODIUM [Suspect]
     Active Substance: METHOTREXATE SODIUM
     Indication: Still^s disease
     Dosage: UNK
     Route: 065
  18. PREDNISONE [Suspect]
     Active Substance: PREDNISONE
     Indication: Still^s disease
     Dosage: 20 MG, Q2W
     Route: 058
     Dates: start: 200608
  19. THALIDOMIDE [Suspect]
     Active Substance: THALIDOMIDE
     Dosage: UNK
     Route: 065
  20. THALIDOMIDE [Suspect]
     Active Substance: THALIDOMIDE
     Indication: Still^s disease
     Dosage: UNKNOWN
     Route: 065
  21. TOCILIZUMAB [Suspect]
     Active Substance: TOCILIZUMAB
     Indication: Still^s disease
     Dosage: UNK
     Route: 065
  22. ABATACEPT [Concomitant]
     Active Substance: ABATACEPT
     Indication: Still^s disease
     Dosage: UNKNOWN
     Route: 065
  23. ANAKINRA [Concomitant]
     Active Substance: ANAKINRA
     Indication: Still^s disease
     Dosage: UNKNOWN
     Route: 065
  24. CYCLOSPORINE [Concomitant]
     Active Substance: CYCLOSPORINE
     Indication: Still^s disease
     Dosage: UNKNOWN
     Route: 065
  25. PREDNISONE [Concomitant]
     Active Substance: PREDNISONE
     Indication: Still^s disease
     Dosage: 0.150MG/KG QD
     Route: 048
  26. TOCILIZUMAB [Concomitant]
     Active Substance: TOCILIZUMAB
     Indication: Still^s disease
     Dosage: UNKNOWN
     Route: 065

REACTIONS (7)
  - Haemophagocytic lymphohistiocytosis [Unknown]
  - COVID-19 [Unknown]
  - Thrombotic microangiopathy [Unknown]
  - Still^s disease [Unknown]
  - Drug ineffective for unapproved indication [Unknown]
  - Steroid dependence [Unknown]
  - Off label use [Unknown]
